FAERS Safety Report 6400891-9 (Version None)
Quarter: 2009Q4

REPORT INFORMATION
  Report Type: 
  Country: None (occurrence: None)
  Receive Date: 20091009
  Receipt Date: 20090929
  Transmission Date: 20100525
  Serious: Yes (Hospitalization)
  Sender: FDA-Public Use
  Company Number: 231375J09USA

PATIENT
  Age: 32 Week
  Sex: Male
  Weight: 1.6 kg

DRUGS (4)
  1. REBIF [Suspect]
     Indication: MULTIPLE SCLEROSIS
     Dosage: TRANSPLACENTAL
     Route: 064
     Dates: end: 20090201
  2. COLACE (DOCUSATE SODIUM) [Suspect]
     Indication: CONSTIPATION
     Dosage: TRANSPLACENTAL
     Route: 064
     Dates: end: 20090621
  3. SINGULAIR [Suspect]
     Indication: ASTHMA
     Dosage: TRANSPLACENTAL
     Route: 064
     Dates: end: 20090621
  4. ALBUTEROL [Suspect]
     Indication: ASTHMA
     Dosage: TRANSPLACENTAL
     Route: 064
     Dates: end: 20090621

REACTIONS (7)
  - ANAEMIA NEONATAL [None]
  - CEREBRAL HAEMORRHAGE [None]
  - CYANOSIS NEONATAL [None]
  - JAUNDICE NEONATAL [None]
  - MATERNAL DRUGS AFFECTING FOETUS [None]
  - PREMATURE BABY [None]
  - TRAUMATIC DELIVERY [None]
